FAERS Safety Report 18650257 (Version 1)
Quarter: 2020Q4

REPORT INFORMATION
  Report Type: Spontaneous
  Country: US (occurrence: CA)
  Receive Date: 20201222
  Receipt Date: 20201222
  Transmission Date: 20210114
  Serious: Yes (Other)
  Sender: FDA-Public Use
  Company Number: CA-ELI_LILLY_AND_COMPANY-CA202012009069

PATIENT
  Sex: Female

DRUGS (1)
  1. CYMBALTA [Suspect]
     Active Substance: DULOXETINE HYDROCHLORIDE
     Indication: MENTAL DISORDER
     Dosage: UNK, UNKNOWN
     Route: 065
     Dates: start: 201305, end: 201310

REACTIONS (3)
  - Off label use [Unknown]
  - Depression suicidal [Unknown]
  - Withdrawal syndrome [Unknown]
